APPROVED DRUG PRODUCT: METHADONE HYDROCHLORIDE INTENSOL
Active Ingredient: METHADONE HYDROCHLORIDE
Strength: 10MG/ML
Dosage Form/Route: CONCENTRATE;ORAL
Application: A089897 | Product #001 | TE Code: AA
Applicant: HIKMA PHARMACEUTICALS USA INC
Approved: Sep 6, 1988 | RLD: No | RS: No | Type: RX